FAERS Safety Report 6148105-1 (Version None)
Quarter: 2009Q2

REPORT INFORMATION
  Report Type: 
  Country: None (occurrence: None)
  Receive Date: 20090408
  Receipt Date: 20090226
  Transmission Date: 20091009
  Serious: No
  Sender: FDA-Public Use
  Company Number: US-BAYER-200914602NA

PATIENT
  Age: 26 Year
  Sex: Female

DRUGS (3)
  1. MIRENA [Suspect]
     Indication: CONTRACEPTION
     Dosage: CONTINUOUS
     Route: 015
     Dates: start: 20090225, end: 20090225
  2. VICODIN [Concomitant]
     Indication: PROCEDURAL PAIN
  3. IBUPROFEN [Concomitant]

REACTIONS (1)
  - PROCEDURAL PAIN [None]
